FAERS Safety Report 18083969 (Version 1)
Quarter: 2020Q3

REPORT INFORMATION
  Report Type: Spontaneous
  Country: GB (occurrence: GB)
  Receive Date: 20200729
  Receipt Date: 20200729
  Transmission Date: 20201103
  Serious: Yes (Other)
  Sender: FDA-Public Use
  Company Number: GB-TEVA-2020-GB-1805749

PATIENT
  Age: 56 Year
  Sex: Female
  Weight: 128 kg

DRUGS (7)
  1. COCODAMOL [Concomitant]
     Active Substance: ACETAMINOPHEN\CODEINE PHOSPHATE
     Indication: PAIN
     Dosage: TAKE 1 OR 2 4 TIMES/DAY WHEN REQUIRED ONLY FOR PAIN
     Dates: start: 20200702
  2. PREGABALIN. [Concomitant]
     Active Substance: PREGABALIN
     Dosage: 4 DOSAGEFORM
     Dates: start: 20200330
  3. BUDESONIDE. [Concomitant]
     Active Substance: BUDESONIDE
     Dosage: 8 DOSAGE FORMS DAILY; 2 PUFF TWICE DAILY
     Dates: start: 20190530
  4. SYMBICORT [Concomitant]
     Active Substance: BUDESONIDE\FORMOTEROL FUMARATE DIHYDRATE
     Dosage: USE AS DIRECTED
     Dates: start: 20200623
  5. CETIRIZINE [Concomitant]
     Active Substance: CETIRIZINE HYDROCHLORIDE
     Dosage: 1 DOSAGE FORMS DAILY;
     Dates: start: 20200706
  6. SALBUTAMOL [Concomitant]
     Active Substance: ALBUTEROL
     Dosage: INHALE 2 DOSES AS NEEDED: UNIT DOSE:2 DOSAGEFORM
     Route: 055
     Dates: start: 20190507
  7. AMLODIPINE [Suspect]
     Active Substance: AMLODIPINE BESYLATE
     Dosage: 5 MILLIGRAM DAILY;
     Dates: start: 20200702

REACTIONS (2)
  - Swollen tongue [Recovering/Resolving]
  - Dyspnoea [Unknown]

NARRATIVE: CASE EVENT DATE: 20200702
